FAERS Safety Report 8622256-1 (Version None)
Quarter: 2012Q3

REPORT INFORMATION
  Report Type: 
  Country: None (occurrence: None)
  Receive Date: 20120827
  Receipt Date: 20120815
  Transmission Date: 20120928
  Serious: Yes (Other)
  Sender: FDA-Public Use
  Company Number: CA-BRISTOL-MYERS SQUIBB COMPANY-16862864

PATIENT
  Age: 54 Year
  Sex: Female

DRUGS (9)
  1. ORENCIA [Suspect]
     Indication: RHEUMATOID ARTHRITIS
     Dosage: LAST INFUSION ON 14-AUG-2012,NO OF INF:4
     Route: 042
     Dates: start: 20120613
  2. SULFASALAZINE [Concomitant]
  3. NAPROXEN [Concomitant]
  4. TRIAMTERENE HCL [Concomitant]
  5. PANTOPRAZOLE SODIUM [Concomitant]
  6. TEVAPIRIN [Concomitant]
  7. LEUCOVORIN CALCIUM [Concomitant]
  8. FENOFIBRATE [Concomitant]
  9. ALENDRONATE SODIUM [Concomitant]

REACTIONS (1)
  - CHOLELITHIASIS [None]
